FAERS Safety Report 12287659 (Version 4)
Quarter: 2016Q2

REPORT INFORMATION
  Report Type: Spontaneous
  Country: JP (occurrence: JP)
  Receive Date: 20160420
  Receipt Date: 20160615
  Transmission Date: 20160815
  Serious: Yes (Hospitalization)
  Sender: FDA-Public Use
  Company Number: JP-JT-EVA201600846KERYXP-001

PATIENT
  Age: 66 Year
  Sex: Male
  Weight: 64 kg

DRUGS (28)
  1. RIONA [Suspect]
     Active Substance: FERRIC CITRATE ANHYDROUS
     Indication: HYPERPHOSPHATAEMIA
     Dosage: 250 MG, TID
     Route: 048
     Dates: start: 20160119, end: 20160408
  2. PLAVIX [Concomitant]
     Active Substance: CLOPIDOGREL BISULFATE
     Indication: ANGINA UNSTABLE
     Dosage: 75 MG, QD
     Route: 048
     Dates: start: 2010
  3. TENELIA [Concomitant]
     Active Substance: TENELIGLIPTIN
     Indication: DIABETES MELLITUS
     Dosage: 100 MG, QD
     Route: 048
     Dates: start: 20130420, end: 20160407
  4. DOPS [Concomitant]
     Active Substance: DROXIDOPA
     Indication: PROCEDURAL HYPOTENSION
     Dosage: 400 MG, QD
     Route: 048
     Dates: start: 20130425
  5. MYSLEE [Concomitant]
     Active Substance: ZOLPIDEM TARTRATE
     Indication: INSOMNIA
     Dosage: 10 MG, QD
     Route: 048
     Dates: start: 20131031
  6. NERISONA [Concomitant]
     Active Substance: DIFLUCORTOLONE VALERATE
     Indication: ECZEMA
     Dosage: UNK
     Route: 062
     Dates: start: 20130325
  7. TENELIA [Concomitant]
     Active Substance: TENELIGLIPTIN
     Dosage: 100 MG, QD
     Route: 048
     Dates: start: 20160413
  8. BASEN                              /01290601/ [Concomitant]
     Active Substance: VOGLIBOSE
     Dosage: 20 MG, QD
     Route: 048
     Dates: start: 20160414
  9. LIPITOR [Concomitant]
     Active Substance: ATORVASTATIN CALCIUM
     Indication: HYPERLIPIDAEMIA
     Dosage: 10 MG, QD
     Route: 048
     Dates: start: 20130504, end: 20160407
  10. HORNEL [Concomitant]
     Indication: HYPERPARATHYROIDISM SECONDARY
     Dosage: 100 MG, QD
     Route: 048
     Dates: start: 20131109
  11. EPOETIN ALFA [Concomitant]
     Active Substance: ERYTHROPOIETIN
     Indication: NEPHROGENIC ANAEMIA
     Dosage: 6000 MG, BID
     Route: 042
     Dates: start: 20150405, end: 20160426
  12. PENLES [Concomitant]
     Active Substance: LIDOCAINE
     Indication: PUNCTURE SITE PAIN
     Dosage: UNK UNK, QD
     Route: 062
     Dates: start: 20130420
  13. BASEN                              /01290601/ [Concomitant]
     Active Substance: VOGLIBOSE
     Indication: DIABETES MELLITUS
     Dosage: 20 MG, QD
     Route: 048
     Dates: start: 20130420, end: 20160407
  14. TAKEPRON [Concomitant]
     Active Substance: LANSOPRAZOLE
     Indication: GASTROOESOPHAGEAL REFLUX DISEASE
     Dosage: 15 MG, QD
     Route: 048
     Dates: start: 20130504
  15. PALUX [Concomitant]
     Active Substance: ALPROSTADIL
     Indication: PERIPHERAL ARTERIAL OCCLUSIVE DISEASE
     Dosage: 30 MICROGRAM, 3 TIMES/WK
     Route: 042
     Dates: start: 20141027
  16. DEQUALINIUM                        /00148702/ [Concomitant]
     Active Substance: DEQUALINIUM
     Indication: NASOPHARYNGITIS
     Dosage: 0.25 MG, UNK
     Route: 049
     Dates: start: 20160407, end: 20160409
  17. RIONA [Suspect]
     Active Substance: FERRIC CITRATE ANHYDROUS
     Dosage: 250 MG, TID
     Route: 048
     Dates: start: 20160414, end: 20160509
  18. ARTIST [Concomitant]
     Active Substance: CARVEDILOL
     Indication: HYPERTENSION
     Dosage: 2.5 MG, BID
     Route: 048
     Dates: start: 20130420
  19. LIPITOR [Concomitant]
     Active Substance: ATORVASTATIN CALCIUM
     Dosage: 10 MG, QD
     Route: 048
     Dates: start: 20160414
  20. HEPARINOID [Concomitant]
     Active Substance: CHONDROITIN SULFATE (BOVINE)
     Indication: ECZEMA
     Dosage: UNK
     Route: 062
  21. BAYASPIRIN [Concomitant]
     Active Substance: ASPIRIN
     Indication: ANGINA UNSTABLE
     Dosage: 100 MG, QD
     Route: 048
     Dates: start: 2010
  22. PLETAAL [Concomitant]
     Active Substance: CILOSTAZOL
     Indication: PERIPHERAL ARTERIAL OCCLUSIVE DISEASE
     Dosage: 200 MG, BID
     Route: 048
     Dates: start: 20130420
  23. EPADEL-S [Concomitant]
     Active Substance: ICOSAPENT ETHYL
     Indication: PERIPHERAL ARTERIAL OCCLUSIVE DISEASE
     Dosage: 1800 MG, BID
     Route: 048
     Dates: start: 20130420
  24. SHAKUYAKUKANZOTO [Concomitant]
     Active Substance: HERBALS
     Indication: ARTHRITIS
     Dosage: 2.5 G, QD
     Route: 048
     Dates: start: 20140816
  25. SALAZAC                            /00216201/ [Concomitant]
     Indication: NASOPHARYNGITIS
     Dosage: 3 G, TID
     Route: 048
     Dates: start: 20160407, end: 20160408
  26. ADALAT CRONO [Concomitant]
     Active Substance: NIFEDIPINE
     Indication: HYPERTENSION
     Dosage: 20 MG, QD
     Route: 048
     Dates: start: 20130420, end: 20160510
  27. EURAX H [Concomitant]
     Indication: ECZEMA
     Dosage: UNK
     Route: 062
     Dates: start: 20140107
  28. LOXONIN [Concomitant]
     Active Substance: LOXOPROFEN SODIUM
     Indication: MYALGIA
     Dosage: 50 MG, QD
     Route: 062
     Dates: start: 20140612

REACTIONS (2)
  - Diverticulitis [Recovered/Resolved]
  - Colitis [Recovered/Resolved]

NARRATIVE: CASE EVENT DATE: 20160408
